FAERS Safety Report 21409377 (Version 1)
Quarter: 2022Q4

REPORT INFORMATION
  Report Type: Spontaneous
  Country: CN (occurrence: CN)
  Receive Date: 20221004
  Receipt Date: 20221004
  Transmission Date: 20230113
  Serious: Yes (Hospitalization)
  Sender: FDA-Public Use
  Company Number: CN-PFIZER INC-PV202200074680

PATIENT
  Age: 59 Year
  Sex: Female
  Weight: 73 kg

DRUGS (1)
  1. MEDROL [Suspect]
     Active Substance: METHYLPREDNISOLONE
     Indication: Hepatic cirrhosis
     Dosage: 32 MG, 1X/DAY
     Route: 048
     Dates: start: 20220808, end: 20220811

REACTIONS (1)
  - Blood glucose increased [Recovering/Resolving]

NARRATIVE: CASE EVENT DATE: 20220810
